FAERS Safety Report 4627930-X (Version None)
Quarter: 2005Q2

REPORT INFORMATION
  Report Type: 
  Country: None (occurrence: None)
  Receive Date: 20050401
  Receipt Date: 20050325
  Transmission Date: 20051028
  Serious: Yes (Hospitalization)
  Sender: FDA-Public Use
  Company Number: MEDI-0003087

PATIENT
  Age: 9 Month
  Sex: Male

DRUGS (6)
  1. SYNAGIS [Suspect]
     Indication: ANTIVIRAL PROPHYLAXIS
     Dosage: SEE IMAGE
     Route: 030
     Dates: start: 20031218, end: 20040217
  2. SYNAGIS [Suspect]
     Indication: ANTIVIRAL PROPHYLAXIS
     Dosage: SEE IMAGE
     Route: 030
     Dates: start: 20031218
  3. SYNAGIS [Suspect]
     Indication: ANTIVIRAL PROPHYLAXIS
     Dosage: SEE IMAGE
     Route: 030
     Dates: start: 20040121
  4. ALFACALCIDOL (ALFACALCIDOL) [Concomitant]
  5. FERRIC PYROPHOSPHATE (FERRIC PYROPHOSPHATE) [Concomitant]
  6. EPOETIN ALFA (EPOETIN ALFA) [Concomitant]

REACTIONS (1)
  - STRIDOR [None]
